FAERS Safety Report 25675840 (Version 1)
Quarter: 2025Q3

REPORT INFORMATION
  Report Type: Report from Study
  Country: US (occurrence: US)
  Receive Date: 20250813
  Receipt Date: 20250813
  Transmission Date: 20251020
  Serious: Yes (Other)
  Sender: JAZZ
  Company Number: US-JAZZ-2021-US-001490

PATIENT
  Sex: Female

DRUGS (17)
  1. XYREM [Suspect]
     Active Substance: SODIUM OXYBATE
     Indication: Narcolepsy
     Dosage: 2.25 GRAM, BID
     Dates: start: 201805, end: 201805
  2. XYREM [Suspect]
     Active Substance: SODIUM OXYBATE
     Indication: Cataplexy
  3. XYREM [Suspect]
     Active Substance: SODIUM OXYBATE
     Dosage: 2.5 GRAM, BID
     Dates: start: 202008
  4. XYREM [Suspect]
     Active Substance: SODIUM OXYBATE
     Dosage: 2.75 GRAM, BID
  5. ALCOHOL [Suspect]
     Active Substance: ALCOHOL
     Indication: Product used for unknown indication
  6. ALCOHOL [Suspect]
     Active Substance: ALCOHOL
  7. MIRENA [Concomitant]
     Active Substance: LEVONORGESTREL
  8. METFORMIN HYDROCHLORIDE [Concomitant]
     Active Substance: METFORMIN HYDROCHLORIDE
  9. CETIRIZINE HCL [Concomitant]
     Active Substance: CETIRIZINE HYDROCHLORIDE
     Indication: Product used for unknown indication
  10. NASACORT ALLERGY 24HR [Concomitant]
     Active Substance: TRIAMCINOLONE ACETONIDE
     Indication: Product used for unknown indication
  11. UNITHROID [Concomitant]
     Active Substance: LEVOTHYROXINE SODIUM
     Indication: Product used for unknown indication
  12. PROPRANOLOL [Concomitant]
     Active Substance: PROPRANOLOL HYDROCHLORIDE
     Indication: Product used for unknown indication
  13. SELENIUM [Concomitant]
     Active Substance: SELENIUM
     Indication: Product used for unknown indication
  14. MAGNESIUM OXIDE [Concomitant]
     Active Substance: MAGNESIUM OXIDE
     Indication: Product used for unknown indication
  15. SUPER B COMPLEX [ASCORBIC ACID;BIOTIN;CALCIUM PANTOTHENATE;CHOLINE BIT [Concomitant]
     Indication: Product used for unknown indication
  16. IBUPROFEN [Concomitant]
     Active Substance: IBUPROFEN
     Indication: Product used for unknown indication
  17. TIRZEPATIDE [Concomitant]
     Active Substance: TIRZEPATIDE
     Indication: Product used for unknown indication

REACTIONS (6)
  - Back injury [Unknown]
  - Ligament sprain [Not Recovered/Not Resolved]
  - Insulin resistance [Not Recovered/Not Resolved]
  - Polycystic ovaries [Not Recovered/Not Resolved]
  - Muscle spasms [Unknown]
  - Contraindicated product administered [Unknown]

NARRATIVE: CASE EVENT DATE: 20220101
